FAERS Safety Report 8814628 (Version 2)
Quarter: 2012Q4

REPORT INFORMATION
  Report Type: Spontaneous
  Country: JP (occurrence: None)
  Receive Date: 20120926
  Receipt Date: 20121012
  Transmission Date: 20130627
  Serious: Yes (Hospitalization)
  Sender: FDA-Public Use
  Company Number: JP-20120048

PATIENT
  Age: 61 Year
  Sex: Male

DRUGS (1)
  1. OXILAN [Suspect]
     Indication: CORONARY ANGIOGRAPH
     Dosage: unk (65 ml, 1 in 1 D), Intra-arterial
     Route: 013
     Dates: start: 20120808, end: 20120808

REACTIONS (5)
  - Drug eruption [None]
  - Cheilitis [None]
  - Stomatitis [None]
  - Stevens-Johnson syndrome [None]
  - Mucosal inflammation [None]
